FAERS Safety Report 10223055 (Version 1)
Quarter: 2014Q2

REPORT INFORMATION
  Report Type: Report from Study
  Country: BR (occurrence: BR)
  Receive Date: 20140607
  Receipt Date: 20140607
  Transmission Date: 20141212
  Serious: Yes (Other)
  Sender: FDA-Public Use
  Company Number: PHHY2014BR066869

PATIENT
  Sex: Male
  Weight: 72 kg

DRUGS (3)
  1. EXJADE [Suspect]
     Indication: SERUM FERRITIN ABNORMAL
     Dosage: 2 DF, A DAY
     Dates: start: 20131216, end: 201402
  2. AMIOBAL [Concomitant]
     Indication: ARRHYTHMIA
     Dosage: 200 ML, A DAY
  3. FOLIC ACID [Concomitant]
     Indication: VITAMIN SUPPLEMENTATION
     Dosage: 1 DF, IN THE MORNING

REACTIONS (7)
  - Hepatic pain [Recovered/Resolved]
  - Hepatomegaly [Recovered/Resolved]
  - Malaise [Recovered/Resolved]
  - Aphagia [Recovered/Resolved]
  - Retching [Recovered/Resolved]
  - Abdominal distension [Recovered/Resolved]
  - Anaemia [Unknown]
